FAERS Safety Report 24455969 (Version 2)
Quarter: 2024Q4

REPORT INFORMATION
  Report Type: Spontaneous
  Country: FR (occurrence: FR)
  Receive Date: 20241017
  Receipt Date: 20241018
  Transmission Date: 20250115
  Serious: No
  Sender: ROCHE
  Company Number: None

PATIENT
  Age: 61 Year
  Sex: Male
  Weight: 87.0 kg

DRUGS (7)
  1. RITUXIMAB [Suspect]
     Active Substance: RITUXIMAB
     Indication: Glomerulonephritis membranous
     Dosage: 25 ML/H
     Route: 065
     Dates: start: 20240115, end: 20240115
  2. ESIDREX [Concomitant]
     Active Substance: HYDROCHLOROTHIAZIDE
  3. IRBESARTAN [Concomitant]
     Active Substance: IRBESARTAN
  4. EZETIMIBE\SIMVASTATIN [Concomitant]
     Active Substance: EZETIMIBE\SIMVASTATIN
  5. ZOPICLONE [Concomitant]
     Active Substance: ZOPICLONE
  6. OXAZEPAM [Concomitant]
     Active Substance: OXAZEPAM
  7. EMPAGLIFLOZIN [Concomitant]
     Active Substance: EMPAGLIFLOZIN

REACTIONS (1)
  - Infusion related hypersensitivity reaction [Recovered/Resolved]

NARRATIVE: CASE EVENT DATE: 20240115
